FAERS Safety Report 25519297 (Version 3)
Quarter: 2025Q4

REPORT INFORMATION
  Report Type: Report from Study
  Country: GB (occurrence: GB)
  Receive Date: 20250704
  Receipt Date: 20251224
  Transmission Date: 20260118
  Serious: Yes (Hospitalization)
  Sender: NOVARTIS
  Company Number: GB-002147023-NVSC2025GB101384

PATIENT
  Age: 47 Year
  Sex: Male

DRUGS (1)
  1. KESIMPTA [Suspect]
     Active Substance: OFATUMUMAB
     Indication: Relapsing-remitting multiple sclerosis
     Dosage: 20 MG, QMO
     Route: 058
     Dates: start: 20250123

REACTIONS (5)
  - Urinary tract infection [Recovering/Resolving]
  - Orchitis [Recovering/Resolving]
  - Vertigo [Not Recovered/Not Resolved]
  - Balance disorder [Not Recovered/Not Resolved]
  - Back pain [Recovered/Resolved]

NARRATIVE: CASE EVENT DATE: 20250528
